FAERS Safety Report 11275326 (Version 3)
Quarter: 2015Q4

REPORT INFORMATION
  Report Type: Report from Study
  Country: TW (occurrence: TW)
  Receive Date: 20150716
  Receipt Date: 20151028
  Transmission Date: 20160304
  Serious: Yes (Death)
  Sender: FDA-Public Use
  Company Number: TW-ABBVIE-15K-153-1427307-00

PATIENT
  Age: 57 Year
  Sex: Female
  Weight: 59.1 kg

DRUGS (3)
  1. HUMIRA [Suspect]
     Active Substance: ADALIMUMAB
     Indication: CROHN^S DISEASE
     Route: 058
     Dates: start: 20141112, end: 20150609
  2. PREDNISOLONE. [Concomitant]
     Active Substance: PREDNISOLONE
     Indication: CROHN^S DISEASE
     Route: 048
     Dates: start: 20130702, end: 20150609
  3. UNDIARRHEA [Concomitant]
     Indication: CROHN^S DISEASE
     Route: 048
     Dates: start: 20130702, end: 20150609

REACTIONS (1)
  - Cough [Fatal]

NARRATIVE: CASE EVENT DATE: 20150612
